FAERS Safety Report 10224376 (Version 2)
Quarter: 2014Q2

REPORT INFORMATION
  Report Type: Spontaneous
  Country: CA (occurrence: CA)
  Receive Date: 20140609
  Receipt Date: 20140630
  Transmission Date: 20141212
  Serious: Yes (Other)
  Sender: FDA-Public Use
  Company Number: CA-JNJFOC-20140519923

PATIENT
  Age: 54 Year
  Sex: Female

DRUGS (2)
  1. RESOTRAN [Suspect]
     Indication: CONSTIPATION
     Route: 048
  2. NUCYNTA CR [Interacting]
     Indication: PRODUCT USED FOR UNKNOWN INDICATION
     Route: 065

REACTIONS (2)
  - Serotonin syndrome [Unknown]
  - Drug interaction [Unknown]
